FAERS Safety Report 16318432 (Version 2)
Quarter: 2019Q4

REPORT INFORMATION
  Report Type: Spontaneous
  Country: DE (occurrence: DE)
  Receive Date: 20190516
  Receipt Date: 20191206
  Transmission Date: 20200122
  Serious: Yes (Death, Life-Threatening, Hospitalization, Other)
  Sender: FDA-Public Use
  Company Number: DE-AUROBINDO-AUR-APL-2019-028589

PATIENT
  Age: 79 Year
  Sex: Female
  Weight: 71 kg

DRUGS (42)
  1. PREDNISOLONE. [Suspect]
     Active Substance: PREDNISOLONE
     Indication: PRODUCT USED FOR UNKNOWN INDICATION
     Dosage: UNK
     Route: 065
  2. PARACETAMOL [Concomitant]
     Active Substance: ACETAMINOPHEN
     Indication: PRODUCT USED FOR UNKNOWN INDICATION
     Dosage: UNK
     Route: 065
  3. DIGIMERCK MINOR [Concomitant]
     Active Substance: DIGITOXIN
     Indication: PRODUCT USED FOR UNKNOWN INDICATION
     Dosage: UNK
     Route: 065
  4. AMLODIPINE [Suspect]
     Active Substance: AMLODIPINE BESYLATE
     Indication: HYPERTENSION
     Dosage: UNK
     Route: 065
     Dates: start: 2016, end: 2017
  5. MOVICOL [Concomitant]
     Active Substance: POLYETHYLENE GLYCOL 3350\POTASSIUM CHLORIDE\SODIUM BICARBONATE\SODIUM CHLORIDE
     Indication: PRODUCT USED FOR UNKNOWN INDICATION
     Dosage: UNK UNK, BID
     Route: 065
  6. FERRO-SANOL DUODENAL [Concomitant]
     Active Substance: FERROUS GLYCINE SULFATE
     Indication: PRODUCT USED FOR UNKNOWN INDICATION
     Dosage: UNK
     Route: 065
     Dates: start: 2011
  7. PANTOZOL [Concomitant]
     Active Substance: PANTOPRAZOLE SODIUM
     Indication: PRODUCT USED FOR UNKNOWN INDICATION
     Dosage: UNK
     Route: 065
  8. BISOPROLOL PLUS [Suspect]
     Active Substance: BISOPROLOL FUMARATE\HYDROCHLOROTHIAZIDE
     Indication: PRODUCT USED FOR UNKNOWN INDICATION
     Dosage: UNK
     Route: 065
     Dates: start: 2014, end: 2018
  9. DIOVAN [Suspect]
     Active Substance: VALSARTAN
     Indication: HYPERTENSION
     Dosage: UNK, 80 OT, UNK
     Route: 065
     Dates: start: 2011, end: 2013
  10. AMLODIPIN (BESILAT) DEXCEL [Concomitant]
     Active Substance: AMLODIPINE BESYLATE
     Indication: PRODUCT USED FOR UNKNOWN INDICATION
     Dosage: UNK
     Route: 065
     Dates: start: 2013, end: 2017
  11. EYLEA [Concomitant]
     Active Substance: AFLIBERCEPT
     Indication: PRODUCT USED FOR UNKNOWN INDICATION
     Dosage: UNK
     Route: 065
     Dates: start: 2014
  12. PANTOPRAZOL TAD [Concomitant]
     Active Substance: PANTOPRAZOLE SODIUM
     Indication: PRODUCT USED FOR UNKNOWN INDICATION
     Dosage: UNK
     Route: 065
     Dates: start: 2015
  13. VALSARTAN FILM-COATED TABLET [Suspect]
     Active Substance: VALSARTAN
     Indication: HYPERTENSION
     Dosage: 320 MILLIGRAM, ONCE A DAY, 160 MG, BID
     Route: 065
     Dates: start: 2005
  14. VALSARTAN DURA [Suspect]
     Active Substance: VALSARTAN
     Indication: HYPERTENSION
     Dosage: UNK
     Route: 065
     Dates: start: 2017, end: 2018
  15. DIOVAN [Suspect]
     Active Substance: VALSARTAN
     Dosage: 160 MILLIGRAM
     Route: 065
     Dates: start: 2013, end: 2013
  16. L-THYROXIN [Concomitant]
     Active Substance: LEVOTHYROXINE SODIUM
     Indication: PRODUCT USED FOR UNKNOWN INDICATION
     Dosage: UNK
     Route: 065
     Dates: start: 2011, end: 2018
  17. DEXAGENT OPHTAL [Concomitant]
     Active Substance: DEXAMETHASONE\GENTAMICIN SULFATE
     Indication: PRODUCT USED FOR UNKNOWN INDICATION
     Dosage: UNK
     Route: 065
     Dates: start: 2014
  18. CLEXANE [Concomitant]
     Active Substance: ENOXAPARIN SODIUM
     Indication: PRODUCT USED FOR UNKNOWN INDICATION
     Dosage: UNK
     Route: 065
     Dates: start: 2011
  19. ECURAL [Concomitant]
     Active Substance: MOMETASONE
     Indication: PRODUCT USED FOR UNKNOWN INDICATION
     Dosage: UNK
     Route: 065
  20. MOMETASONFUROAAT GLENMARK [Concomitant]
     Dosage: UNK
     Route: 065
     Dates: start: 2018
  21. MACROGOL 3350;POTASSIUM CHLORIDE;SODIUM BICARBONATE;SODIUM CHLORIDE [Concomitant]
     Indication: PRODUCT USED FOR UNKNOWN INDICATION
     Dosage: UNK
     Route: 065
     Dates: start: 201902
  22. L-THYROX HEXAL [Suspect]
     Active Substance: LEVOTHYROXINE SODIUM
     Indication: PRODUCT USED FOR UNKNOWN INDICATION
     Dosage: UNK
     Route: 065
     Dates: start: 2014
  23. VALSARTAN HEXAL [Suspect]
     Active Substance: VALSARTAN
     Indication: HYPERTENSION
     Dosage: UNK
     Route: 065
     Dates: start: 2013
  24. L-THYROXIN ARISTO [Concomitant]
     Indication: PRODUCT USED FOR UNKNOWN INDICATION
     Dosage: UNK
     Route: 065
     Dates: start: 2013
  25. EUTHYROX [Concomitant]
     Active Substance: LEVOTHYROXINE SODIUM
     Indication: PRODUCT USED FOR UNKNOWN INDICATION
     Dosage: UNK, ONCE A DAY (MORNING)
     Route: 065
  26. PANTOPRAZOLE [Concomitant]
     Active Substance: PANTOPRAZOLE
     Indication: PRODUCT USED FOR UNKNOWN INDICATION
     Dosage: 40 MILLIGRAM
     Route: 065
     Dates: start: 201901
  27. TAVOR [Concomitant]
     Indication: PRODUCT USED FOR UNKNOWN INDICATION
     Dosage: UNK, 1.0 OT
     Route: 065
     Dates: start: 201902
  28. ADVANTAN [Concomitant]
     Active Substance: METHYLPREDNISOLONE ACEPONATE
     Indication: PRODUCT USED FOR UNKNOWN INDICATION
     Dosage: UNK
     Route: 065
     Dates: start: 2018
  29. PENICILLIN V AL [Concomitant]
     Indication: PRODUCT USED FOR UNKNOWN INDICATION
     Dosage: UNK
     Route: 065
     Dates: start: 2015
  30. NOVAMINSULFON [Concomitant]
     Active Substance: METAMIZOLE
     Indication: PRODUCT USED FOR UNKNOWN INDICATION
     Dosage: UNK
     Route: 065
     Dates: start: 2011
  31. FUROSEMID [Concomitant]
     Active Substance: FUROSEMIDE
     Indication: PRODUCT USED FOR UNKNOWN INDICATION
     Dosage: 40 MILLIGRAM, TWO TIMES A DAY
     Route: 065
     Dates: start: 201903
  32. VALSARTAN 1A PHARMA [Suspect]
     Active Substance: VALSARTAN
     Indication: HYPERTENSION
     Dosage: 160 MILLIGRAM, ONCE A DAY
     Route: 048
     Dates: start: 201312, end: 2017
  33. AMLODIPIN 1 A PHARMA [Suspect]
     Active Substance: AMLODIPINE BESYLATE
     Indication: HYPERTENSION
     Dosage: 5 MILLIGRAM
     Route: 065
     Dates: start: 2013, end: 2018
  34. VALSARTAN HEXAL [Suspect]
     Active Substance: VALSARTAN
     Dosage: 160 MILLIGRAM
     Route: 065
     Dates: start: 2014
  35. BISOPROLOL COMP [Concomitant]
     Indication: PRODUCT USED FOR UNKNOWN INDICATION
     Dosage: UNK
     Route: 065
     Dates: start: 2014, end: 2017
  36. IBUPROFEN AL [Concomitant]
     Active Substance: IBUPROFEN
     Indication: PRODUCT USED FOR UNKNOWN INDICATION
     Dosage: UNK
     Route: 065
     Dates: start: 2011
  37. MOMETASONFUROAAT GLENMARK [Concomitant]
     Indication: PRODUCT USED FOR UNKNOWN INDICATION
     Dosage: UNK
     Route: 065
     Dates: start: 2015
  38. INFECTOTRIMET [Concomitant]
     Indication: PRODUCT USED FOR UNKNOWN INDICATION
     Dosage: UNK
     Route: 065
     Dates: start: 2015
  39. HYDROMORPHONE [Concomitant]
     Active Substance: HYDROMORPHONE
     Indication: PRODUCT USED FOR UNKNOWN INDICATION
     Dosage: 2 MILLIGRAM
     Route: 065
     Dates: start: 201902
  40. HALOPERIDOL NEURAXPHARM [Concomitant]
     Indication: PRODUCT USED FOR UNKNOWN INDICATION
     Dosage: 30 MILLILITER
     Route: 065
     Dates: start: 201902
  41. MIDAZOLAM [Concomitant]
     Active Substance: MIDAZOLAM HYDROCHLORIDE
     Indication: PRODUCT USED FOR UNKNOWN INDICATION
     Dosage: 5 MILLIGRAM/MILLILITRE
     Route: 065
     Dates: start: 201903
  42. FENTANYL CT [Concomitant]
     Indication: PRODUCT USED FOR UNKNOWN INDICATION
     Dosage: 12 MICROGRAM/HOUR
     Route: 065
     Dates: start: 201903

REACTIONS (76)
  - Vomiting [Unknown]
  - Right ventricular failure [Unknown]
  - Left ventricular failure [Unknown]
  - Tinnitus [Unknown]
  - Colitis [Unknown]
  - Ventricular hypertrophy [Unknown]
  - Melanocytic naevus [Unknown]
  - Chronic kidney disease [Unknown]
  - Brain neoplasm [Unknown]
  - Clear cell renal cell carcinoma [Not Recovered/Not Resolved]
  - Asthenia [Unknown]
  - Blood pressure increased [Unknown]
  - Dyspnoea [Unknown]
  - Fibroma [Unknown]
  - Diarrhoea [Unknown]
  - Fall [Unknown]
  - Haemorrhoids [Unknown]
  - Pruritus [Unknown]
  - Death [Fatal]
  - Metastases to central nervous system [Unknown]
  - Blood glucose increased [Unknown]
  - Osteoarthritis [Unknown]
  - Bradycardia [Unknown]
  - Basal cell carcinoma [Unknown]
  - Cataract [Unknown]
  - Swelling [Unknown]
  - Defaecation disorder [Unknown]
  - Fatigue [Unknown]
  - Abdominal pain [Unknown]
  - Ischaemia [Unknown]
  - General physical health deterioration [Unknown]
  - Cognitive disorder [Unknown]
  - Disturbance in attention [Unknown]
  - Pain in extremity [Unknown]
  - Large intestine polyp [Unknown]
  - Dizziness [Unknown]
  - Arthralgia [Recovering/Resolving]
  - Gastroenteritis [Unknown]
  - Drug intolerance [Unknown]
  - Dyspnoea exertional [Unknown]
  - Peripheral swelling [Unknown]
  - Oedema peripheral [Recovering/Resolving]
  - Rash [Unknown]
  - Drug ineffective [Unknown]
  - Productive cough [Unknown]
  - Pustule [Unknown]
  - Gait disturbance [Unknown]
  - Erysipelas [Unknown]
  - Steroid diabetes [Unknown]
  - Atrial fibrillation [Unknown]
  - Restlessness [Unknown]
  - Tachycardia [Unknown]
  - Colon adenoma [Unknown]
  - Meniscal degeneration [Unknown]
  - Functional gastrointestinal disorder [Unknown]
  - Personality change [Unknown]
  - Metastases to lung [Not Recovered/Not Resolved]
  - Urinary retention [Unknown]
  - Weight increased [Recovering/Resolving]
  - Adenoma benign [Unknown]
  - Urinary tract infection [Unknown]
  - Dysuria [Unknown]
  - Ventricular extrasystoles [Unknown]
  - Aphthous ulcer [Unknown]
  - Tendon rupture [Unknown]
  - Insomnia [Unknown]
  - Inflammatory marker increased [Unknown]
  - Brain oedema [Unknown]
  - Visual impairment [Unknown]
  - Varicose vein [Unknown]
  - Erythema [Unknown]
  - Dermatosis [Unknown]
  - Cerumen impaction [Unknown]
  - Anaemia [Unknown]
  - Joint swelling [Unknown]
  - Nocturia [Unknown]

NARRATIVE: CASE EVENT DATE: 2008
